FAERS Safety Report 13528541 (Version 1)
Quarter: 2017Q2

REPORT INFORMATION
  Report Type: Spontaneous
  Country: DE (occurrence: DE)
  Receive Date: 20170509
  Receipt Date: 20170509
  Transmission Date: 20170830
  Serious: Yes (Other)
  Sender: FDA-Public Use
  Company Number: DE-MYLANLABS-2017M1027173

PATIENT

DRUGS (7)
  1. RAMIPRIL. [Suspect]
     Active Substance: RAMIPRIL
     Dosage: LZ-MEDIKATION
  2. ACETYLSALICYLSAEURE [Concomitant]
     Active Substance: ASPIRIN
     Dosage: LZ-MEDIKATION
  3. SERTRALIN STADA [Concomitant]
     Active Substance: SERTRALINE HYDROCHLORIDE
     Dosage: 25 MG, QD
     Dates: end: 20160119
  4. AMITRIPTYLINE [Suspect]
     Active Substance: AMITRIPTYLINE
     Dosage: 150 MG, QD
     Dates: start: 20160120, end: 20160316
  5. REMERGIL [Concomitant]
     Active Substance: MIRTAZAPINE
     Dosage: 30 MG, QD
     Dates: end: 20160124
  6. DIAZEP [Concomitant]
     Dosage: 12.5 MG, QD
     Dates: start: 20160121, end: 20160214
  7. L-THYROXIN [Concomitant]
     Active Substance: LEVOTHYROXINE SODIUM
     Dosage: LZ-MEDIKATION

REACTIONS (1)
  - Hyponatraemia [Recovered/Resolved]

NARRATIVE: CASE EVENT DATE: 2016
